FAERS Safety Report 20799241 (Version 1)
Quarter: 2022Q2

REPORT INFORMATION
  Report Type: Spontaneous
  Country: NL (occurrence: NL)
  Receive Date: 20220508
  Receipt Date: 20220508
  Transmission Date: 20220721
  Serious: Yes (Hospitalization)
  Sender: FDA-Public Use
  Company Number: None

PATIENT
  Age: 74 Year
  Sex: Male
  Weight: 68 kg

DRUGS (10)
  1. GEMCITABINE [Suspect]
     Active Substance: GEMCITABINE
     Indication: Transitional cell carcinoma
     Dosage: 1 X PER DAY 1 PIECE,  BRAND NAME NOT SPECIFIED, DURATION : 11 DAYS
     Dates: start: 20220321, end: 20220401
  2. CARBOPLATIN [Suspect]
     Active Substance: CARBOPLATIN
     Indication: Transitional cell carcinoma
     Dosage: DURATION : 11 DAYS, 1 X PER DAY 1 PIECE,  BRAND NAME NOT SPECIFIED
     Dates: start: 20220321, end: 20220401
  3. POLYETHYLENE GLYCOL 4000 [Concomitant]
     Active Substance: POLYETHYLENE GLYCOL 4000
     Dosage: POWDER FOR DRINK, 10 G (GRAMS), THERAPY START DATE AND END DATE : ASKU, MACROGOL POWDER V BEVERAGE 1
  4. OXYCODONE [Concomitant]
     Active Substance: OXYCODONE
     Dosage: IF NECESSARY, OXYCODON TABLET   5MG / BRAND NAME NOT SPECIFIED, THERAPY START DATE AND END DATE : AS
  5. LISINOPRIL [Concomitant]
     Active Substance: LISINOPRIL
     Dosage: 5 MG (MILLIGRAM), LISINOPRIL TABLET  5MG / BRAND NAME NOT SPECIFIED, THERAPY START DATE AND END DAT
  6. MIRABEGRON [Concomitant]
     Active Substance: MIRABEGRON
     Dosage: 50 MG (MILLIGRAMS), , MIRABEGRON TABLET MGA 50MG / BETMIGA TABLET MVA 50MG, THERAPY START DATE AND
  7. ATORVASTATIN [Concomitant]
     Active Substance: ATORVASTATIN
     Dosage: TABLET, 40 MG (MILLIGRAM), / BRAND NAME NOT SPECIFIED, THERAPY START DATE AND END DATE : ASKU, STREN
  8. METFORMIN HYDROCHLORIDE [Concomitant]
     Active Substance: METFORMIN HYDROCHLORIDE
     Dosage: 500 MG (MILLIGRAMS),METFORMINE TABLET MGA  500MG / GLUCIENT SR TABLET MVA 500MG, THERAPY START DATE
  9. CLOPIDOGREL [Concomitant]
     Active Substance: CLOPIDOGREL BISULFATE
     Dosage: 75 MG (MILLIGRAM), CLOPIDOGREL TABLET   75MG / BRAND NAME NOT SPECIFIED, THERAPY START DATE AND END
  10. SOLIFENACIN [Concomitant]
     Active Substance: SOLIFENACIN
     Dosage: TABLET, 10 MG (MILLIGRAM),  BRAND NAME NOT SPECIFIED, THERAPY START DATE AND END DATE : ASKU, STRENG

REACTIONS (2)
  - Hiccups [Recovering/Resolving]
  - Hypophagia [Recovering/Resolving]

NARRATIVE: CASE EVENT DATE: 20220328
